FAERS Safety Report 13521287 (Version 2)
Quarter: 2018Q1

REPORT INFORMATION
  Report Type: Spontaneous
  Country: US (occurrence: US)
  Receive Date: 20170508
  Receipt Date: 20180206
  Transmission Date: 20180508
  Serious: No
  Sender: FDA-Public Use
  Company Number: US-PFIZER INC-2017192024

PATIENT
  Age: 61 Year
  Sex: Female
  Weight: 88.5 kg

DRUGS (3)
  1. TRAMADOL. [Suspect]
     Active Substance: TRAMADOL
     Indication: PAIN
  2. TRAMADOL. [Suspect]
     Active Substance: TRAMADOL
     Indication: ARTHRITIS
     Dosage: 1 DF, DAILY (1 TAB Q AM)
     Route: 048
  3. DICLOFENAC/DICLOFENAC EPOLAMINE/DICLOFENAC SODIUM [Suspect]
     Active Substance: DICLOFENAC
     Dosage: 1 DF, DAILY (1 TAB Q EVENING)

REACTIONS (1)
  - Drug effect incomplete [Unknown]
